FAERS Safety Report 9664603 (Version 1)
Quarter: 2013Q4

REPORT INFORMATION
  Report Type: Spontaneous
  Country: US (occurrence: None)
  Receive Date: 20131031
  Receipt Date: 20131031
  Transmission Date: 20140711
  Serious: Yes (Hospitalization)
  Sender: FDA-Public Use
  Company Number: None

PATIENT
  Sex: 0

DRUGS (13)
  1. IVIG [Suspect]
     Indication: NEUROPATHY PERIPHERAL
     Dates: start: 20110819, end: 20110820
  2. ACETAMINOPHEN [Concomitant]
  3. CALCIUM/VITAMIN D [Concomitant]
  4. CEFEPIME [Concomitant]
  5. DIPHENHYDRAMINE [Concomitant]
  6. DULOXETINE [Concomitant]
  7. GABAPENTIN [Concomitant]
  8. HEPARIN [Concomitant]
  9. HYDROCHLOROTHIAZIDE [Concomitant]
  10. LABETALOL [Concomitant]
  11. PREDNISONE [Concomitant]
  12. RANITIDINE [Concomitant]
  13. SIMVASTATIN [Concomitant]

REACTIONS (5)
  - Gait disturbance [None]
  - Hypotension [None]
  - Lethargy [None]
  - Respiratory disorder [None]
  - General physical health deterioration [None]
